FAERS Safety Report 4765990-6 (Version None)
Quarter: 2005Q3

REPORT INFORMATION
  Report Type: 
  Country: None (occurrence: None)
  Receive Date: 20050906
  Receipt Date: 20050818
  Transmission Date: 20060218
  Serious: Yes (Death)
  Sender: FDA-Public Use
  Company Number: US_0505116923

PATIENT
  Age: 70 Year
  Sex: Female

DRUGS (2)
  1. ZYPREXA [Suspect]
     Indication: MENTAL DISORDER
     Dosage: 10 MG/2 DAY
     Dates: start: 20050425, end: 20050426
  2. VITAMIN B COMPLEX CAP [Concomitant]

REACTIONS (4)
  - CARDIOPULMONARY FAILURE [None]
  - CONVULSION [None]
  - DELIRIUM [None]
  - SOMNOLENCE [None]
